FAERS Safety Report 17622754 (Version 4)
Quarter: 2020Q2

REPORT INFORMATION
  Report Type: Spontaneous
  Country: HU (occurrence: HU)
  Receive Date: 20200403
  Receipt Date: 20200429
  Transmission Date: 20200713
  Serious: Yes (Hospitalization, Other)
  Sender: FDA-Public Use
  Company Number: HU-PFIZER INC-2020134989

PATIENT
  Age: 36 Year
  Sex: Female

DRUGS (8)
  1. SERTRALINE HCL [Suspect]
     Active Substance: SERTRALINE HYDROCHLORIDE
     Indication: DYSPHAGIA
  2. SERTRALINE HCL [Suspect]
     Active Substance: SERTRALINE HYDROCHLORIDE
     Indication: THROAT TIGHTNESS
  3. LAMOTRIGIN [Concomitant]
     Active Substance: LAMOTRIGINE
     Dosage: UNK
  4. CARBAMAZEPIN [Concomitant]
     Active Substance: CARBAMAZEPINE
     Dosage: UNK
  5. ALPRAZOLAM. [Suspect]
     Active Substance: ALPRAZOLAM
     Indication: SPEECH DISORDER
  6. ALPRAZOLAM. [Suspect]
     Active Substance: ALPRAZOLAM
     Indication: DYSPHAGIA
  7. ALPRAZOLAM. [Suspect]
     Active Substance: ALPRAZOLAM
     Indication: THROAT TIGHTNESS
     Dosage: UNK
     Dates: start: 2011
  8. SERTRALINE HCL [Suspect]
     Active Substance: SERTRALINE HYDROCHLORIDE
     Indication: SPEECH DISORDER
     Dosage: UNK
     Dates: start: 2011

REACTIONS (7)
  - Condition aggravated [Unknown]
  - Dyspnoea [Unknown]
  - Myasthenia gravis [Unknown]
  - Sputum retention [Unknown]
  - Respiratory failure [Unknown]
  - Dysphagia [Unknown]
  - Upper respiratory tract infection [Unknown]

NARRATIVE: CASE EVENT DATE: 2012
